FAERS Safety Report 8886888 (Version 1)
Quarter: 2012Q4

REPORT INFORMATION
  Report Type: 
  Country: FR (occurrence: FR)
  Receive Date: 20121105
  Receipt Date: 20121105
  Transmission Date: 20130627
  Serious: Yes (Hospitalization)
  Sender: FDA-Public Use
  Company Number: FR-PFIZER INC-2012270288

PATIENT
  Age: 77 Year
  Sex: Male

DRUGS (13)
  1. ZYVOXID [Suspect]
     Dosage: 600 mg, 2x/day
     Route: 042
     Dates: start: 20120416, end: 20120424
  2. VANCOMYCINE [Suspect]
     Dosage: UNK
     Route: 042
     Dates: start: 20120409, end: 20120416
  3. AMOXICILLIN [Suspect]
     Dosage: 12 g, 1x/day
     Route: 042
     Dates: start: 20120416, end: 20120422
  4. MEROPENEM [Suspect]
     Dosage: UNK
     Route: 042
     Dates: start: 20120409, end: 20120413
  5. FLAGYL [Suspect]
     Dosage: UNK
     Route: 042
     Dates: start: 20120409, end: 20120413
  6. LOVENOX [Concomitant]
     Dosage: 0.4 ml, 1x/day
     Route: 058
     Dates: start: 20120413, end: 20120502
  7. CLAFORAN [Concomitant]
     Dosage: UNK
     Route: 042
     Dates: start: 20120413, end: 20120416
  8. INEXIUM [Concomitant]
  9. TRANSIPEG [Concomitant]
  10. TARDYFERON [Concomitant]
  11. SPECIAFOLDINE [Concomitant]
  12. GAVISCON [Concomitant]
  13. DIFFU K [Concomitant]
     Dosage: UNK
     Dates: start: 20120409, end: 20120503

REACTIONS (4)
  - Rash maculo-papular [Recovered/Resolved]
  - Urticaria [Recovered/Resolved]
  - Pruritus [Recovered/Resolved]
  - Purpura [Recovered/Resolved]
